FAERS Safety Report 8829429 (Version 2)
Quarter: 2013Q2

REPORT INFORMATION
  Report Type: Report from Study
  Country: JP (occurrence: JP)
  Receive Date: 20121008
  Receipt Date: 20130528
  Transmission Date: 20140414
  Serious: Yes (Other)
  Sender: FDA-Public Use
  Company Number: JP-VERTEX PHARMACEUTICAL INC.-2012-022347

PATIENT
  Age: 64 Year
  Sex: Male

DRUGS (14)
  1. VX-950 (TELAPREVIR) [Suspect]
     Indication: CHRONIC HEPATITIS C
     Dosage: 2250 MG, QD
     Route: 048
     Dates: start: 20120823, end: 20120827
  2. VX-950 (TELAPREVIR) [Suspect]
     Dosage: 1500 MG, QD
     Route: 048
     Dates: start: 20120828, end: 20120903
  3. PEGINTRON [Suspect]
     Indication: CHRONIC HEPATITIS C
     Dosage: 1.5 ?G/KG, QW
     Route: 058
     Dates: start: 20120823, end: 20120903
  4. REBETOL [Suspect]
     Indication: CHRONIC HEPATITIS C
     Dosage: 1000 MG, QD
     Route: 048
     Dates: start: 20120823, end: 20120827
  5. REBETOL [Suspect]
     Dosage: 800 MG, QD
     Route: 048
     Dates: start: 20120828, end: 20120903
  6. MICAMLO [Concomitant]
     Dosage: 1 DF, QD
     Route: 048
  7. AMLODIPINE [Concomitant]
     Dosage: 5 MG, QD
     Route: 048
  8. CARDENALIN [Concomitant]
     Dosage: 1 MG, QD
     Route: 048
  9. TAKEPRON [Concomitant]
     Dosage: 30 MG, QD
     Route: 048
  10. TAMSULOSIN HYDROCHLORIDE [Concomitant]
     Dosage: 0.2 MG, QD
     Route: 048
  11. AVOLVE [Concomitant]
     Dosage: 0.5 MG, QD
     Route: 048
  12. LENDEM [Concomitant]
     Dosage: 0.25 MG, QD
     Route: 048
  13. URSO [Concomitant]
     Dosage: 600 MG, QD
     Route: 048
  14. ALLOZYM [Concomitant]
     Dosage: 100 MG, QD
     Dates: start: 20120829

REACTIONS (3)
  - Malaise [Recovered/Resolved]
  - Decreased appetite [Recovered/Resolved]
  - Renal impairment [Recovered/Resolved]
